FAERS Safety Report 8437178-9 (Version None)
Quarter: 2012Q2

REPORT INFORMATION
  Report Type: 
  Country: None (occurrence: None)
  Receive Date: 20120614
  Receipt Date: 20120307
  Transmission Date: 20120825
  Serious: No
  Sender: FDA-Public Use
  Company Number: US-AMGEN-USASP2011059469

PATIENT
  Age: 61 Year
  Sex: Female
  Weight: 65.306 kg

DRUGS (4)
  1. ESTROVEN [Concomitant]
     Dosage: 2 MG, UNK
     Route: 067
     Dates: start: 20091201
  2. PROLIA [Suspect]
     Indication: OSTEOPOROSIS POSTMENOPAUSAL
     Dosage: 60 MG, Q6MO
     Dates: start: 20111101, end: 20111101
  3. FLOVENT [Concomitant]
     Dosage: 110 MUG, UNK
     Dates: start: 20091001
  4. ALVESCO [Concomitant]
     Dosage: 160 MG, UNK
     Dates: start: 20091001

REACTIONS (3)
  - NECK PAIN [None]
  - MUSCULOSKELETAL PAIN [None]
  - INFLUENZA LIKE ILLNESS [None]
